FAERS Safety Report 24463387 (Version 1)
Quarter: 2024Q4

REPORT INFORMATION
  Report Type: Report from Study
  Country: US (occurrence: US)
  Receive Date: 20241018
  Receipt Date: 20241018
  Transmission Date: 20250115
  Serious: No
  Sender: ROCHE
  Company Number: US-ROCHE-3312123

PATIENT
  Age: 27 Year
  Sex: Male
  Weight: 149.0 kg

DRUGS (11)
  1. XOLAIR [Suspect]
     Active Substance: OMALIZUMAB
     Indication: Asthma
     Dosage: LAST INJECTION DATE: 29/AUG/2023
     Route: 058
     Dates: start: 20221122
  2. XOLAIR [Suspect]
     Active Substance: OMALIZUMAB
     Route: 058
     Dates: start: 20230424
  3. PREDNISONE [Concomitant]
     Active Substance: PREDNISONE
  4. SYMBICORT [Concomitant]
     Active Substance: BUDESONIDE\FORMOTEROL FUMARATE DIHYDRATE
  5. MEDROL [Concomitant]
     Active Substance: METHYLPREDNISOLONE
  6. XOPENEX HFA [Concomitant]
     Active Substance: LEVALBUTEROL TARTRATE
  7. SPIRIVA RESPIMAT [Concomitant]
     Active Substance: TIOTROPIUM BROMIDE
  8. LOPRESSOR [Concomitant]
     Active Substance: METOPROLOL TARTRATE
  9. EPIPEN [Concomitant]
     Active Substance: EPINEPHRINE
  10. DESYREL [Concomitant]
     Active Substance: TRAZODONE HYDROCHLORIDE
  11. SYMBICORT [Concomitant]
     Active Substance: BUDESONIDE\FORMOTEROL FUMARATE DIHYDRATE

REACTIONS (8)
  - Off label use [Unknown]
  - Upper respiratory tract infection [Unknown]
  - Blood immunoglobulin E increased [Unknown]
  - Dyspnoea exertional [Unknown]
  - Hypersomnia [Unknown]
  - Cough [Unknown]
  - Obesity [Unknown]
  - Sleep apnoea syndrome [Unknown]
